FAERS Safety Report 7095824-9 (Version None)
Quarter: 2010Q4

REPORT INFORMATION
  Report Type: 
  Country: None (occurrence: None)
  Receive Date: 20101111
  Receipt Date: 20100929
  Transmission Date: 20110411
  Serious: Yes (Other)
  Sender: FDA-Public Use
  Company Number: US-BAXTER-2010BH007378

PATIENT
  Age: 24 Year
  Sex: Female
  Weight: 93 kg

DRUGS (21)
  1. HEPARIN SODIUM INJECTION [Suspect]
     Indication: PULMONARY EMBOLISM
     Route: 040
     Dates: start: 20080203, end: 20080203
  2. HEPARIN SODIUM INJECTION [Suspect]
     Indication: PROPHYLAXIS
     Route: 040
     Dates: start: 20080203, end: 20080203
  3. HEPARIN SODIUM INJECTION [Suspect]
     Indication: DEEP VEIN THROMBOSIS
     Route: 040
     Dates: start: 20080203, end: 20080203
  4. HEPARIN SODIUM INJECTION [Suspect]
     Route: 041
     Dates: start: 20080203, end: 20080210
  5. HEPARIN SODIUM INJECTION [Suspect]
     Route: 041
     Dates: start: 20080203, end: 20080210
  6. HEPARIN SODIUM INJECTION [Suspect]
     Route: 041
     Dates: start: 20080203, end: 20080210
  7. HEPARIN SODIUM INJECTION [Suspect]
     Route: 058
     Dates: start: 20080507, end: 20080508
  8. HEPARIN SODIUM INJECTION [Suspect]
     Route: 058
     Dates: start: 20080507, end: 20080508
  9. HEPARIN SODIUM INJECTION [Suspect]
     Route: 058
     Dates: start: 20080507, end: 20080508
  10. HEPARIN SODIUM INJECTION [Suspect]
     Route: 042
     Dates: start: 20080203, end: 20080203
  11. HEPARIN SODIUM INJECTION [Suspect]
     Route: 042
     Dates: start: 20080203, end: 20080203
  12. HEPARIN SODIUM INJECTION [Suspect]
     Route: 042
     Dates: start: 20080203, end: 20080203
  13. TETRACYCLINE HYDROCHLORIDE [Concomitant]
     Indication: PRODUCT USED FOR UNKNOWN INDICATION
     Route: 048
     Dates: start: 20080101
  14. METHERGINE [Concomitant]
     Indication: PRODUCT USED FOR UNKNOWN INDICATION
     Route: 048
     Dates: start: 20080101
  15. CELEBREX [Concomitant]
     Indication: PRODUCT USED FOR UNKNOWN INDICATION
     Route: 048
     Dates: start: 20080101
  16. MORPHINE [Concomitant]
     Indication: PRODUCT USED FOR UNKNOWN INDICATION
     Route: 065
  17. PRILOSEC [Concomitant]
     Indication: PRODUCT USED FOR UNKNOWN INDICATION
     Route: 048
  18. WARFARIN [Concomitant]
     Indication: PRODUCT USED FOR UNKNOWN INDICATION
     Route: 048
  19. TYLENOL [Concomitant]
     Indication: PRODUCT USED FOR UNKNOWN INDICATION
     Route: 048
  20. DEXTROSE [Concomitant]
     Indication: MEDICATION DILUTION
     Route: 041
     Dates: start: 20080203, end: 20080210
  21. MAGNESIUM CITRATE [Concomitant]
     Indication: PRODUCT USED FOR UNKNOWN INDICATION
     Route: 048

REACTIONS (10)
  - ABDOMINAL PAIN [None]
  - ASTHENIA [None]
  - ATELECTASIS [None]
  - CHEST PAIN [None]
  - CONSTIPATION [None]
  - DYSPNOEA [None]
  - HEADACHE [None]
  - HYPOAESTHESIA [None]
  - MUSCLE SPASMS [None]
  - PARAESTHESIA [None]
